FAERS Safety Report 14196041 (Version 3)
Quarter: 2018Q1

REPORT INFORMATION
  Report Type: Spontaneous
  Country: FR (occurrence: FR)
  Receive Date: 20171116
  Receipt Date: 20180124
  Transmission Date: 20180508
  Serious: Yes (Life-Threatening, Hospitalization)
  Sender: FDA-Public Use
  Company Number: FR-JNJFOC-20171118044

PATIENT
  Age: 95 Year
  Sex: Female
  Weight: 72 kg

DRUGS (12)
  1. TARDYFERON [Concomitant]
     Active Substance: FERROUS SULFATE
     Route: 048
  2. XARELTO [Suspect]
     Active Substance: RIVAROXABAN
     Indication: PERIPHERAL ARTERIAL OCCLUSIVE DISEASE
     Route: 048
     Dates: start: 20171003, end: 20171019
  3. XARELTO [Suspect]
     Active Substance: RIVAROXABAN
     Indication: ATRIAL FIBRILLATION
     Route: 048
     Dates: start: 20171003, end: 20171019
  4. KARDEGIC [Suspect]
     Active Substance: ASPIRIN DL-LYSINE
     Indication: PERIPHERAL ARTERIAL OCCLUSIVE DISEASE
     Route: 048
     Dates: start: 20000101, end: 20171019
  5. TAHOR [Concomitant]
     Active Substance: ATORVASTATIN CALCIUM
     Route: 048
  6. TRINIPATCH [Concomitant]
     Active Substance: NITROGLYCERIN
     Route: 062
  7. LASILIX [Concomitant]
     Active Substance: FUROSEMIDE
     Dosage: 1 IN THE MORNING, 1/2 IN THE MIDDAY.
     Route: 048
  8. BISOPROLOL [Concomitant]
     Active Substance: BISOPROLOL
     Route: 048
  9. RAMIPRIL. [Concomitant]
     Active Substance: RAMIPRIL
     Route: 048
  10. RAMIPRIL. [Concomitant]
     Active Substance: RAMIPRIL
     Route: 048
  11. LANZOR [Concomitant]
     Active Substance: LANSOPRAZOLE
     Route: 048
  12. TRINIPATCH [Concomitant]
     Active Substance: NITROGLYCERIN
     Dosage: 10 MG PER 24 HOURS.
     Route: 062

REACTIONS (1)
  - Anaemia macrocytic [Recovered/Resolved]

NARRATIVE: CASE EVENT DATE: 20171019
